FAERS Safety Report 23201501 (Version 1)
Quarter: 2023Q4

REPORT INFORMATION
  Report Type: Spontaneous
  Country: JP (occurrence: JP)
  Receive Date: 20231118
  Receipt Date: 20231118
  Transmission Date: 20240110
  Serious: Yes (Death, Hospitalization)
  Sender: FDA-Public Use
  Company Number: JP-SERVIER-S23010293

PATIENT
  Age: 80 Year
  Sex: Female

DRUGS (5)
  1. ONIVYDE [Suspect]
     Active Substance: IRINOTECAN HYDROCHLORIDE
     Indication: Pancreatic carcinoma
     Dosage: 50 MG/M2
     Route: 042
     Dates: start: 202012, end: 2023
  2. ONIVYDE [Suspect]
     Active Substance: IRINOTECAN HYDROCHLORIDE
     Dosage: 50 MG/M2
     Route: 042
     Dates: start: 202308, end: 202308
  3. FLUOROURACIL [Concomitant]
     Active Substance: FLUOROURACIL
     Indication: Pancreatic carcinoma
     Dosage: UNK
     Route: 042
     Dates: start: 202012, end: 2023
  4. FLUOROURACIL [Concomitant]
     Active Substance: FLUOROURACIL
     Dosage: UNK
     Route: 042
     Dates: start: 202308, end: 202308
  5. LEVOLEUCOVORIN CALCIUM [Concomitant]
     Active Substance: LEVOLEUCOVORIN CALCIUM
     Indication: Pancreatic carcinoma
     Dosage: UNK
     Route: 042
     Dates: start: 202012, end: 202308

REACTIONS (2)
  - Interstitial lung disease [Fatal]
  - Off label use [Recovered/Resolved]

NARRATIVE: CASE EVENT DATE: 20201201
